FAERS Safety Report 13427849 (Version 2)
Quarter: 2017Q2

REPORT INFORMATION
  Report Type: Spontaneous
  Country: IT (occurrence: IT)
  Receive Date: 20170411
  Receipt Date: 20170413
  Transmission Date: 20170830
  Serious: Yes (Hospitalization)
  Sender: FDA-Public Use
  Company Number: IT-SA-2017SA061339

PATIENT
  Age: 34 Year
  Sex: Male

DRUGS (7)
  1. ZIRTEC [Suspect]
     Active Substance: CETIRIZINE HYDROCHLORIDE
     Route: 048
  2. PARACETAMOL [Suspect]
     Active Substance: ACETAMINOPHEN
     Route: 048
  3. IBUPROFEN. [Suspect]
     Active Substance: IBUPROFEN
     Dosage: SACHET
     Route: 048
  4. AUGMENTIN [Suspect]
     Active Substance: AMOXICILLIN\CLAVULANATE POTASSIUM
     Route: 048
  5. ALCOHOL. [Concomitant]
     Active Substance: ALCOHOL
     Route: 065
  6. ENOXAPARIN SODIUM. [Suspect]
     Active Substance: ENOXAPARIN SODIUM
     Dosage: ENOXAPARIN 4000 IU 4-5 AMPOULES DRUNK
     Route: 058
  7. NORMIX [Suspect]
     Active Substance: RIFAXIMIN
     Route: 048

REACTIONS (3)
  - Sopor [Unknown]
  - Abdominal pain upper [Unknown]
  - Drug use disorder [Unknown]

NARRATIVE: CASE EVENT DATE: 20170222
